FAERS Safety Report 23040436 (Version 3)
Quarter: 2023Q4

REPORT INFORMATION
  Report Type: Other
  Country: US (occurrence: US)
  Receive Date: 20231006
  Receipt Date: 20231224
  Transmission Date: 20240110
  Serious: No
  Sender: FDA-Public Use
  Company Number: US-TRAVERE-2023TVT00196

PATIENT
  Age: 11 Month
  Sex: Female

DRUGS (4)
  1. CHOLBAM [Suspect]
     Active Substance: CHOLIC ACID
     Indication: Lipid metabolism disorder
     Route: 048
     Dates: start: 20230204
  2. CHOLBAM [Suspect]
     Active Substance: CHOLIC ACID
     Dosage: 200 MG AS DIRECTED
     Route: 048
     Dates: start: 20230205
  3. AMOXICILLIN [Concomitant]
     Active Substance: AMOXICILLIN
  4. HYDROCORTISONE [Concomitant]
     Active Substance: HYDROCORTISONE

REACTIONS (4)
  - Hepatic enzyme abnormal [Unknown]
  - Ear infection [Unknown]
  - Nasopharyngitis [Unknown]
  - Otorrhoea [Unknown]
